FAERS Safety Report 12304839 (Version 1)
Quarter: 2016Q2

REPORT INFORMATION
  Report Type: Spontaneous
  Country: US (occurrence: None)
  Receive Date: 20160425
  Receipt Date: 20160425
  Transmission Date: 20160815
  Serious: No
  Sender: FDA-Public Use
  Company Number: None

PATIENT
  Age: 30 Year
  Sex: Female

DRUGS (1)
  1. LEMTRADA [Suspect]
     Active Substance: ALEMTUZUMAB
     Indication: MULTIPLE SCLEROSIS
     Dosage: 12MG/1.2ML DAILY FOR 5 DAYS IV
     Route: 042
     Dates: start: 20160411

REACTIONS (6)
  - Movement disorder [None]
  - Pain [None]
  - Heart rate increased [None]
  - Hypoaesthesia [None]
  - Chills [None]
  - Flushing [None]

NARRATIVE: CASE EVENT DATE: 20160411
